FAERS Safety Report 12306058 (Version 1)
Quarter: 2016Q2

REPORT INFORMATION
  Report Type: Spontaneous
  Country: US (occurrence: US)
  Receive Date: 20160426
  Receipt Date: 20160426
  Transmission Date: 20160815
  Serious: No
  Sender: FDA-Public Use
  Company Number: US-BIOGEN-2016BI00224064

PATIENT

DRUGS (1)
  1. AVONEX [Suspect]
     Active Substance: INTERFERON BETA-1A
     Indication: MULTIPLE SCLEROSIS

REACTIONS (8)
  - Sinusitis [Unknown]
  - General symptom [Unknown]
  - Visual impairment [Unknown]
  - Fatigue [Unknown]
  - Influenza [Unknown]
  - Vision blurred [Unknown]
  - Seasonal allergy [Unknown]
  - Nasopharyngitis [Unknown]
